FAERS Safety Report 20886478 (Version 2)
Quarter: 2023Q1

REPORT INFORMATION
  Report Type: Report from Study
  Country: US (occurrence: US)
  Receive Date: 20220527
  Receipt Date: 20230105
  Transmission Date: 20230418
  Serious: No
  Sender: FDA-Public Use
  Company Number: US-NOVARTISTESTPH-NVSC2022US122684

PATIENT
  Sex: Female

DRUGS (1)
  1. COSENTYX [Suspect]
     Active Substance: SECUKINUMAB
     Indication: Psoriatic arthropathy
     Dosage: 300 MG, QMO (EVERY 4 WEEKS)
     Route: 058

REACTIONS (8)
  - Pain in extremity [Unknown]
  - Back pain [Unknown]
  - Arthralgia [Unknown]
  - Hypoaesthesia [Unknown]
  - Paraesthesia [Unknown]
  - Condition aggravated [Unknown]
  - Decreased activity [Unknown]
  - Therapeutic product effect incomplete [Unknown]
